FAERS Safety Report 15329732 (Version 1)
Quarter: 2018Q3

REPORT INFORMATION
  Report Type: Spontaneous
  Country: US (occurrence: US)
  Receive Date: 20180824
  Receipt Date: 20180824
  Transmission Date: 20181010
  Serious: Yes (Other)
  Sender: FDA-Public Use
  Company Number: None

PATIENT
  Age: 28 Year
  Sex: Male
  Weight: 96.75 kg

DRUGS (1)
  1. METRONIDAZOLE 500 MG TABLET [Suspect]
     Active Substance: METRONIDAZOLE
     Indication: HELICOBACTER INFECTION
     Dosage: ?          QUANTITY:1 DF DOSAGE FORM;?
     Route: 048

REACTIONS (1)
  - Temporomandibular joint syndrome [None]

NARRATIVE: CASE EVENT DATE: 20180808
